FAERS Safety Report 23713381 (Version 2)
Quarter: 2024Q2

REPORT INFORMATION
  Report Type: Spontaneous
  Country: OM (occurrence: OM)
  Receive Date: 20240405
  Receipt Date: 20240508
  Transmission Date: 20240716
  Serious: Yes (Other)
  Sender: FDA-Public Use
  Company Number: OM-JNJFOC-20240378862

PATIENT
  Age: 21 Year
  Sex: Male
  Weight: 77 kg

DRUGS (1)
  1. INVEGA [Suspect]
     Active Substance: PALIPERIDONE
     Indication: Schizophrenia
     Route: 048
     Dates: start: 20240311

REACTIONS (4)
  - Product residue present [Unknown]
  - Anger [Unknown]
  - Fear [Unknown]
  - Depression [Unknown]

NARRATIVE: CASE EVENT DATE: 20240301
